FAERS Safety Report 4445380-6 (Version None)
Quarter: 2004Q3

REPORT INFORMATION
  Report Type: 
  Country: None (occurrence: None)
  Receive Date: 20040903
  Receipt Date: 20040824
  Transmission Date: 20050211
  Serious: No
  Sender: FDA-Public Use
  Company Number: 04H-083-0271413-00

PATIENT
  Age: 39 Year
  Sex: Male

DRUGS (3)
  1. DOBUTAMINE INJECTION (DOBUTAMINE HYDROCHLORIDE INJECTION) (DOBUTAMINE [Suspect]
     Indication: STRESS ECHOCARDIOGRAM
     Dosage: MAX OF 40 MCG/KG/MIN
  2. ATROPINE [Concomitant]
  3. METOPROLOL [Concomitant]

REACTIONS (3)
  - BUNDLE BRANCH BLOCK LEFT [None]
  - QRS AXIS ABNORMAL [None]
  - VENTRICULAR TACHYCARDIA [None]
